FAERS Safety Report 19260062 (Version 2)
Quarter: 2022Q2

REPORT INFORMATION
  Report Type: Report from Study
  Country: US (occurrence: US)
  Receive Date: 20210514
  Receipt Date: 20220419
  Transmission Date: 20220720
  Serious: Yes (Other)
  Sender: FDA-Public Use
  Company Number: US-JAZZ-2021-US-000464

PATIENT
  Sex: Female

DRUGS (5)
  1. XYREM [Suspect]
     Active Substance: SODIUM OXYBATE
     Indication: Narcolepsy
     Dosage: 2.25 GRAM, BID
     Route: 048
     Dates: start: 201304, end: 201305
  2. XYREM [Suspect]
     Active Substance: SODIUM OXYBATE
     Indication: Cataplexy
     Dosage: DOSE ADJUSTMENT
     Route: 048
     Dates: start: 201305, end: 202008
  3. XYREM [Suspect]
     Active Substance: SODIUM OXYBATE
     Indication: Somnolence
     Dosage: 4.5 GRAM, BID
     Route: 048
     Dates: start: 202009
  4. DEXAMETHASONE [Suspect]
     Active Substance: DEXAMETHASONE
     Indication: Infertility
     Dosage: UNK
     Dates: start: 2021
  5. HYDROCODONE [Suspect]
     Active Substance: HYDROCODONE
     Indication: Infertility
     Dosage: UNK
     Dates: start: 20210911, end: 20210911

REACTIONS (6)
  - Anger [Not Recovered/Not Resolved]
  - Pain [Unknown]
  - Syncope [Not Recovered/Not Resolved]
  - Colonoscopy [Unknown]
  - Adrenal disorder [Not Recovered/Not Resolved]
  - Infertility [Unknown]

NARRATIVE: CASE EVENT DATE: 20210101
